FAERS Safety Report 9758134 (Version 1)
Quarter: 2013Q4

REPORT INFORMATION
  Report Type: Spontaneous
  Country: US (occurrence: None)
  Receive Date: 20131213
  Receipt Date: 20131213
  Transmission Date: 20140711
  Serious: Yes (Disabling)
  Sender: FDA-Public Use
  Company Number: None

PATIENT
  Age: 24 Year
  Sex: Male
  Weight: 81.65 kg

DRUGS (1)
  1. ADDERALL [Suspect]
     Dosage: 2  ONCE DAILY TAKEN BY MOUTH
     Route: 048
     Dates: start: 20120411, end: 20131212

REACTIONS (5)
  - Abdominal distension [None]
  - Constipation [None]
  - Drug ineffective [None]
  - Product substitution issue [None]
  - Disturbance in attention [None]
